FAERS Safety Report 8959358 (Version 2)
Quarter: 2013Q1

REPORT INFORMATION
  Report Type: Spontaneous
  Country: US (occurrence: None)
  Receive Date: 20121128
  Receipt Date: 20121207
  Transmission Date: 20140127
  Serious: Yes (Hospitalization)
  Sender: FDA-Public Use
  Company Number: 2012-1357

PATIENT
  Age: 55 Year
  Sex: Female

DRUGS (1)
  1. KYPROLIS (CARFILZOMIB) (INJECTION FOR INFUSION) (CARFILZOMIB) [Suspect]
     Indication: PLASMA CELL MYELOMA
     Route: 042
     Dates: start: 201208

REACTIONS (4)
  - Pneumonia [None]
  - Pancreatic enlargement [None]
  - Asthenia [None]
  - Dehydration [None]
